FAERS Safety Report 17861968 (Version 2)
Quarter: 2020Q2

REPORT INFORMATION
  Report Type: Report from Study
  Country: None (occurrence: US)
  Receive Date: 20200604
  Receipt Date: 20200617
  Transmission Date: 20200714
  Serious: Yes (Other)
  Sender: FDA-Public Use
  Company Number: US-ABBVIE-20K-163-3430600-00

PATIENT
  Age: 63 Year
  Sex: Female
  Weight: 78.09 kg

DRUGS (3)
  1. RINVOQ [Suspect]
     Active Substance: UPADACITINIB
     Indication: RHEUMATOID ARTHRITIS
     Route: 048
     Dates: start: 20190924, end: 20200523
  2. COREG [Concomitant]
     Active Substance: CARVEDILOL
     Indication: HEART VALVE INCOMPETENCE
  3. LOSARTAN. [Concomitant]
     Active Substance: LOSARTAN
     Indication: HEART VALVE INCOMPETENCE

REACTIONS (5)
  - Thyroxine decreased [Not Recovered/Not Resolved]
  - Blood thyroid stimulating hormone increased [Not Recovered/Not Resolved]
  - Tri-iodothyronine decreased [Not Recovered/Not Resolved]
  - Naevoid melanoma [Not Recovered/Not Resolved]
  - Hypothyroidism [Not Recovered/Not Resolved]

NARRATIVE: CASE EVENT DATE: 202004
